FAERS Safety Report 7893914-1 (Version None)
Quarter: 2011Q4

REPORT INFORMATION
  Report Type: 
  Country: None (occurrence: None)
  Receive Date: 20111104
  Receipt Date: 20111031
  Transmission Date: 20120403
  Serious: Yes (Other)
  Sender: FDA-Public Use
  Company Number: US-PFIZER INC-2011240217

PATIENT
  Sex: Female
  Weight: 80.726 kg

DRUGS (18)
  1. MAGNESIUM [Concomitant]
     Dosage: 1 DF, 1X/DAY
  2. OXYCODONE HYDROCHLORIDE [Concomitant]
     Dosage: 5 MG, AS NEEDED
  3. POTASSIUM [Concomitant]
     Dosage: 1 DF (99MG), DAILY
     Route: 048
  4. SANDOSTATIN [Concomitant]
     Indication: DIARRHOEA
  5. LEXAPRO [Concomitant]
     Dosage: 10 MG,TAKE 1 TABLET ORAL DAILY
     Route: 048
  6. MULTI-VITAMINS [Concomitant]
     Dosage: 1 DF, 1X/DAY
  7. VITAMIN B-12 [Concomitant]
     Dosage: 1 DF, 1X/DAY
  8. HUMALOG [Concomitant]
     Dosage: 7 UNITS (OF 100 UNITS/ML), 3X/DAY
     Route: 058
  9. IMITREX [Concomitant]
     Dosage: UNK, AS NEEDED
     Route: 048
  10. SANDOSTATIN [Concomitant]
     Indication: MALIGNANT NEOPLASM OF ISLETS OF LANGERHANS
     Dosage: 60 MG, EVERY 30 DAYS
     Route: 030
  11. SUTENT [Suspect]
     Indication: MALIGNANT NEOPLASM OF ISLETS OF LANGERHANS
     Dosage: 50 MG, 1X/DAY
     Route: 048
     Dates: start: 20100101
  12. SLOW-FE [Concomitant]
     Dosage: 1 DF, UNK
     Route: 048
  13. SANDOSTATIN LAR [Concomitant]
     Dosage: 60 MG,Q 30 DAYS
     Route: 030
  14. CALCIUM [Concomitant]
     Dosage: 1 DF, 1X/DAY
  15. INSULIN DETEMIR [Concomitant]
     Dosage: 10 UNITS (OF 100 UNITS/ML) AT BEDTIME
     Route: 058
  16. AMYLASE/LIPASE/PROTEASE [Concomitant]
     Dosage: TAKE AS DIRECTED
     Route: 048
     Dates: start: 20060101
  17. ASCORBIC ACID [Concomitant]
     Dosage: 1 DF, 1X/DAY
  18. VITAMIN D [Concomitant]
     Dosage: 1000 MG, 1X/DAY
     Route: 048

REACTIONS (2)
  - HAEMATURIA [None]
  - NEPHROLITHIASIS [None]
